FAERS Safety Report 25518970 (Version 1)
Quarter: 2025Q3

REPORT INFORMATION
  Report Type: Spontaneous
  Country: VN (occurrence: VN)
  Receive Date: 20250704
  Receipt Date: 20250704
  Transmission Date: 20251021
  Serious: Yes (Hospitalization, Other)
  Sender: UNICHEM
  Company Number: VN-UNICHEM LABORATORIES LIMITED-UNI-2025-VN-002607

PATIENT

DRUGS (2)
  1. AMITRIPTYLINE [Suspect]
     Active Substance: AMITRIPTYLINE
     Indication: Migraine
     Route: 065
  2. AMITRIPTYLINE [Suspect]
     Active Substance: AMITRIPTYLINE
     Indication: Sleep disorder

REACTIONS (3)
  - Conduction disorder [Recovering/Resolving]
  - Accidental overdose [Recovering/Resolving]
  - Coma [Recovering/Resolving]
